FAERS Safety Report 21303122 (Version 2)
Quarter: 2022Q3

REPORT INFORMATION
  Report Type: Spontaneous
  Country: US (occurrence: US)
  Receive Date: 20220907
  Receipt Date: 20220923
  Transmission Date: 20221027
  Serious: Yes (Other)
  Sender: FDA-Public Use
  Company Number: US-HORIZON THERAPEUTICS-HZN-2022-006767

PATIENT

DRUGS (2)
  1. TEPEZZA [Suspect]
     Active Substance: TEPROTUMUMAB-TRBW
     Indication: Endocrine ophthalmopathy
     Dosage: FRIST INFUSION, EVERY 3 WEEKS
     Route: 042
  2. TEPEZZA [Suspect]
     Active Substance: TEPROTUMUMAB-TRBW
     Dosage: 20 MG/KG (FIFTH INFUSION), EVERY 3 WEEKS
     Route: 042
     Dates: start: 20220816, end: 20220816

REACTIONS (7)
  - Osteonecrosis [Unknown]
  - Back pain [Unknown]
  - Mouth ulceration [Unknown]
  - Arthralgia [Unknown]
  - Condition aggravated [Unknown]
  - Onychoclasis [Unknown]
  - Alopecia [Unknown]
